FAERS Safety Report 24229094 (Version 2)
Quarter: 2024Q3

REPORT INFORMATION
  Report Type: Report from Study
  Country: US (occurrence: US)
  Receive Date: 20240820
  Receipt Date: 20240927
  Transmission Date: 20241016
  Serious: Yes (Life-Threatening, Other)
  Sender: NOVARTIS
  Company Number: US-002147023-NVSC2024US145541

PATIENT
  Sex: Female

DRUGS (1)
  1. KESIMPTA [Suspect]
     Active Substance: OFATUMUMAB
     Indication: Multiple sclerosis
     Dosage: 20 MG
     Route: 058
     Dates: start: 20240628

REACTIONS (14)
  - Near death experience [Unknown]
  - Pyrexia [Recovering/Resolving]
  - Feeling abnormal [Unknown]
  - Feeling cold [Recovering/Resolving]
  - Myalgia [Recovering/Resolving]
  - Somnolence [Unknown]
  - Emotional distress [Unknown]
  - Weight bearing difficulty [Unknown]
  - Gait disturbance [Unknown]
  - Limb discomfort [Unknown]
  - Pain in extremity [Unknown]
  - Asthenia [Unknown]
  - Hypoaesthesia [Unknown]
  - Fatigue [Unknown]
